FAERS Safety Report 26196437 (Version 1)
Quarter: 2025Q4

REPORT INFORMATION
  Report Type: Spontaneous
  Country: US (occurrence: US)
  Receive Date: 20251224
  Receipt Date: 20251224
  Transmission Date: 20260118
  Serious: No
  Sender: ELI LILLY AND COMPANY
  Company Number: US-ELI_LILLY_AND_COMPANY-US202512018320

PATIENT
  Age: 72 Year
  Sex: Male

DRUGS (5)
  1. MOUNJARO [Suspect]
     Active Substance: TIRZEPATIDE
     Indication: Glucose tolerance impaired
     Dosage: 12.5 MG, WEEKLY (1/W)
     Route: 058
     Dates: start: 20251203
  2. MOUNJARO [Suspect]
     Active Substance: TIRZEPATIDE
     Indication: Glucose tolerance impaired
     Dosage: 12.5 MG, WEEKLY (1/W)
     Route: 058
     Dates: start: 20251203
  3. MOUNJARO [Suspect]
     Active Substance: TIRZEPATIDE
     Indication: Glucose tolerance impaired
     Dosage: 12.5 MG, WEEKLY (1/W)
     Route: 058
     Dates: start: 20251203
  4. MOUNJARO [Suspect]
     Active Substance: TIRZEPATIDE
     Indication: Glucose tolerance impaired
     Dosage: 12.5 MG, WEEKLY (1/W)
     Route: 058
     Dates: start: 20251203
  5. ATORVASTATIN [Concomitant]
     Active Substance: ATORVASTATIN
     Indication: Blood cholesterol
     Dosage: UNK UNK, UNKNOWN
     Route: 065
     Dates: start: 20170102

REACTIONS (3)
  - Product dose omission issue [Unknown]
  - Injection site laceration [Unknown]
  - Off label use [Unknown]

NARRATIVE: CASE EVENT DATE: 20251210
